FAERS Safety Report 13861155 (Version 1)
Quarter: 2017Q3

REPORT INFORMATION
  Report Type: Spontaneous
  Country: HR (occurrence: HR)
  Receive Date: 20170811
  Receipt Date: 20170811
  Transmission Date: 20171127
  Serious: Yes (Hospitalization)
  Sender: FDA-Public Use
  Company Number: HR-BAYER-2017-149145

PATIENT
  Age: 63 Year
  Sex: Male

DRUGS (5)
  1. CANESTEN 10 MG/ML OTOPINA ZA KO?U [Suspect]
     Active Substance: CLOTRIMAZOLE
     Indication: LOCALISED INFECTION
     Dosage: UNK, BID
     Route: 062
     Dates: start: 20170622, end: 20170625
  2. TRIDERM [BETAMETHASONE DIPROPIONATE,CLOTRIMAZOLE,GENTAMICIN SULFAT [Suspect]
     Active Substance: BETAMETHASONE DIPROPIONATE\CLOTRIMAZOLE\GENTAMICIN SULFATE
     Indication: LOCALISED INFECTION
     Dosage: UNK
     Route: 062
     Dates: end: 20170622
  3. ALPRAZOLAM. [Concomitant]
     Active Substance: ALPRAZOLAM
     Dosage: .25 MG, UNK
     Route: 048
  4. AMLODIPINE BESILATE W/ATORVASTATIN CALCIUM [Concomitant]
     Indication: HYPERTENSION
     Dosage: 1 DF, QD
     Route: 048
  5. ACETYLSALICYLIC ACID [Concomitant]
     Active Substance: ASPIRIN
     Dosage: 100 MG, QD
     Route: 048

REACTIONS (5)
  - Paraesthesia [Unknown]
  - Skin infection [Unknown]
  - Skin burning sensation [Unknown]
  - Dry skin [Unknown]
  - Paraesthesia [Unknown]

NARRATIVE: CASE EVENT DATE: 20170622
